FAERS Safety Report 18639462 (Version 1)
Quarter: 2020Q4

REPORT INFORMATION
  Report Type: Spontaneous
  Country: SE (occurrence: SE)
  Receive Date: 20201219
  Receipt Date: 20201219
  Transmission Date: 20210114
  Serious: Yes (Death)
  Sender: FDA-Public Use
  Company Number: SE-009507513-2012SWE008422

PATIENT
  Age: 21 Year
  Sex: Male

DRUGS (5)
  1. MELATONIN [Concomitant]
     Active Substance: MELATONIN
     Dosage: UNK
     Dates: start: 20200124, end: 202006
  2. LERGIGAN [Concomitant]
     Dosage: WHEN REQUIRED
     Dates: start: 20200319, end: 202006
  3. MIRTAZAPINE. [Suspect]
     Active Substance: MIRTAZAPINE
     Indication: ANXIETY
     Dosage: UNK
  4. MIRTAZAPINE. [Suspect]
     Active Substance: MIRTAZAPINE
     Indication: SLEEP DISORDER
     Dosage: 15 MILLIGRAM, QD
     Route: 048
     Dates: start: 202005, end: 202006
  5. ZOPICLONE [Concomitant]
     Active Substance: ZOPICLONE
     Dosage: UNK
     Dates: start: 201912, end: 202005

REACTIONS (2)
  - Completed suicide [Fatal]
  - Agitation [Fatal]

NARRATIVE: CASE EVENT DATE: 202006
